FAERS Safety Report 11569713 (Version 3)
Quarter: 2016Q3

REPORT INFORMATION
  Report Type: Spontaneous
  Country: SE (occurrence: SE)
  Receive Date: 20150929
  Receipt Date: 20160722
  Transmission Date: 20161109
  Serious: Yes (Hospitalization, Other)
  Sender: FDA-Public Use
  Company Number: SE-BAYER-2015-426449

PATIENT
  Age: 39 Year
  Sex: Female

DRUGS (4)
  1. DIANE (CYPROTERONE ACETATE\ETHINYL ESTRADIOL) [Suspect]
     Active Substance: CYPROTERONE ACETATE\ETHINYL ESTRADIOL
     Indication: POLYCYSTIC OVARIES
  2. ETHINYLESTRADIOL [Suspect]
     Active Substance: ETHINYL ESTRADIOL
     Dosage: UNK
     Dates: start: 201411, end: 20150904
  3. DIANE (CYPROTERONE ACETATE\ETHINYL ESTRADIOL) [Suspect]
     Active Substance: CYPROTERONE ACETATE\ETHINYL ESTRADIOL
     Indication: ACNE
     Dosage: UNK
     Route: 048
     Dates: start: 20141013, end: 20150904
  4. MIRENA [Suspect]
     Active Substance: LEVONORGESTREL
     Dosage: 20 MCG/24HR, CONT
     Route: 015

REACTIONS (12)
  - Musculoskeletal pain [Not Recovered/Not Resolved]
  - Venous thrombosis limb [None]
  - Pyrexia [None]
  - C-reactive protein increased [None]
  - Pelvic venous thrombosis [Not Recovered/Not Resolved]
  - Pulmonary embolism [Recovered/Resolved]
  - Insomnia [None]
  - Gait disturbance [Not Recovered/Not Resolved]
  - Acne [None]
  - Musculoskeletal pain [Recovered/Resolved]
  - Dyspnoea [Recovered/Resolved]
  - Muscle spasms [None]

NARRATIVE: CASE EVENT DATE: 2015
